FAERS Safety Report 8760045 (Version 1)
Quarter: 2012Q4

REPORT INFORMATION
  Report Type: 
  Country: US (occurrence: US)
  Receive Date: 20120829
  Receipt Date: 20120829
  Transmission Date: 20130627
  Serious: Yes (Hospitalization, Other)
  Sender: FDA-Public Use
  Company Number: US-009507513-2009SP029611

PATIENT

DRUGS (7)
  1. NUVARING [Suspect]
     Indication: MUSCLE SPASMS
     Dates: start: 2004, end: 2006
  2. NUVARING [Suspect]
     Indication: HAEMORRHAGE
     Dates: end: 200710
  3. NUVARING [Suspect]
     Indication: CONTRACEPTION
  4. PROVENTIL [Concomitant]
     Indication: ASTHMA
  5. ZOLOFT [Concomitant]
     Indication: DEPRESSION
     Dosage: 150 mg, BID
     Dates: start: 2001
  6. CAFFEINE [Concomitant]
     Indication: PRODUCT USED FOR UNKNOWN INDICATION
     Dosage: TAKEN ONCE IN AWHILE, NO MORE THAN ONCE A MONTH
  7. IRON (UNSPECIFIED) (+) VITAMINS (UNSPECIFIED) [Concomitant]
     Indication: PRODUCT USED FOR UNKNOWN INDICATION

REACTIONS (14)
  - Pulmonary embolism [Recovered/Resolved]
  - Pulmonary infarction [Recovered/Resolved]
  - Bronchitis bacterial [Unknown]
  - Candidiasis [Unknown]
  - Pharyngitis [Unknown]
  - Epistaxis [Unknown]
  - Spinal disorder [Unknown]
  - Tinea infection [Unknown]
  - Folliculitis [Recovering/Resolving]
  - Dermatitis contact [Unknown]
  - Depression [Unknown]
  - Back pain [Unknown]
  - Off label use [Unknown]
  - Bronchitis [Unknown]
